FAERS Safety Report 4261860-0 (Version None)
Quarter: 2004Q1

REPORT INFORMATION
  Report Type: 
  Country: None (occurrence: None)
  Receive Date: 20040102
  Receipt Date: 20030930
  Transmission Date: 20041129
  Serious: Yes (Death, Hospitalization)
  Sender: FDA-Public Use
  Company Number: PHBS2003JP10712

PATIENT
  Age: 49 Year
  Sex: Male
  Weight: 35 kg

DRUGS (19)
  1. SIMULECT [Suspect]
     Indication: RENAL TRANSPLANT
     Dosage: 20 MG, ONCE/SINGLE
     Route: 042
     Dates: start: 20030802, end: 20030802
  2. SIMULECT [Suspect]
     Dosage: 20 MG, ONCE/SINGLE
     Route: 042
     Dates: start: 20030807, end: 20030807
  3. PROGRAF [Suspect]
     Indication: RENAL TRANSPLANT
     Route: 048
  4. PREDONINE [Concomitant]
     Route: 048
  5. CELLCEPT [Suspect]
     Indication: RENAL TRANSPLANT
  6. LIPOVAS ^BANYU^ [Concomitant]
  7. ASPIRIN [Concomitant]
  8. SALOBEL [Concomitant]
  9. GASTER D [Concomitant]
  10. AMOBAN [Concomitant]
  11. ALOSENN [Concomitant]
  12. GLAKAY [Concomitant]
  13. CALCIUM CARBONATE [Concomitant]
  14. MARZULENE S [Concomitant]
  15. LASIX [Concomitant]
  16. ACETAMINOPHEN [Concomitant]
  17. FLOMOX [Concomitant]
  18. BAKTAR [Concomitant]
  19. DIFLUCAN [Concomitant]

REACTIONS (14)
  - ACUTE PULMONARY OEDEMA [None]
  - ACUTE RESPIRATORY DISTRESS SYNDROME [None]
  - ANAEMIA [None]
  - BLOOD PRESSURE DECREASED [None]
  - CARDIAC FAILURE CHRONIC [None]
  - DEHYDRATION [None]
  - DRUG TOXICITY [None]
  - DYSPNOEA [None]
  - ENTEROCOCCAL BACTERAEMIA [None]
  - NEPHROPATHY TOXIC [None]
  - PYELONEPHRITIS [None]
  - PYREXIA [None]
  - SPUTUM CULTURE POSITIVE [None]
  - WEIGHT INCREASED [None]
